FAERS Safety Report 4736589-2 (Version None)
Quarter: 2005Q3

REPORT INFORMATION
  Report Type: 
  Country: None (occurrence: None)
  Receive Date: 20050802
  Receipt Date: 20050720
  Transmission Date: 20060218
  Serious: Yes (Hospitalization)
  Sender: FDA-Public Use
  Company Number: 2005094649

PATIENT
  Age: 80 Year
  Sex: Male

DRUGS (3)
  1. BEXTRA [Suspect]
     Indication: OSTEOARTHRITIS
     Dosage: 10 MG (10 MG, 1 IN 1 D),
     Dates: start: 20020619, end: 20020709
  2. ASPIRIN [Suspect]
     Indication: ILL-DEFINED DISORDER
     Dosage: 81 MG (81 MG, 1 IN 1 D),
  3. BUMEX [Concomitant]

REACTIONS (2)
  - HAEMORRHAGE [None]
  - RECTAL HAEMORRHAGE [None]
